FAERS Safety Report 23238454 (Version 1)
Quarter: 2023Q4

REPORT INFORMATION
  Report Type: Spontaneous
  Country: CA (occurrence: CA)
  Receive Date: 20231129
  Receipt Date: 20231129
  Transmission Date: 20240109
  Serious: Yes (Other)
  Sender: FDA-Public Use
  Company Number: CA-UCBSA-2023037586

PATIENT
  Sex: Female

DRUGS (4)
  1. CLONAZEPAM [Suspect]
     Active Substance: CLONAZEPAM
     Indication: Product used for unknown indication
  2. LEVETIRACETAM [Suspect]
     Active Substance: LEVETIRACETAM
     Indication: Partial seizures
  3. FYCOMPA [Concomitant]
     Active Substance: PERAMPANEL
     Indication: Product used for unknown indication
  4. LAMOTRIGINE [Concomitant]
     Active Substance: LAMOTRIGINE
     Indication: Product used for unknown indication

REACTIONS (2)
  - Epilepsy [Unknown]
  - Drug ineffective [Unknown]
